FAERS Safety Report 19605791 (Version 3)
Quarter: 2021Q3

REPORT INFORMATION
  Report Type: Spontaneous
  Country: CN (occurrence: CN)
  Receive Date: 20210723
  Receipt Date: 20210823
  Transmission Date: 20211014
  Serious: Yes (Death, Hospitalization)
  Sender: FDA-Public Use
  Company Number: CN-BIOGEN-2021BI01033155

PATIENT
  Age: 3 Year
  Sex: Male
  Weight: 20.5 kg

DRUGS (7)
  1. SPINRAZA [Suspect]
     Active Substance: NUSINERSEN
     Route: 037
     Dates: start: 20210318
  2. SPINRAZA [Suspect]
     Active Substance: NUSINERSEN
     Dosage: DOSE: 5ML:12MG
     Route: 037
     Dates: start: 20191030
  3. SPINRAZA [Suspect]
     Active Substance: NUSINERSEN
     Route: 037
     Dates: start: 20200520
  4. SPINRAZA [Suspect]
     Active Substance: NUSINERSEN
     Indication: SPINAL MUSCULAR ATROPHY
     Dosage: DOSE: 5ML:12MG
     Route: 037
     Dates: start: 20191016
  5. SPINRAZA [Suspect]
     Active Substance: NUSINERSEN
     Dosage: DOSE: 5ML:12MG
     Route: 037
     Dates: start: 20191113
  6. SPINRAZA [Suspect]
     Active Substance: NUSINERSEN
     Route: 037
     Dates: start: 20200917
  7. SPINRAZA [Suspect]
     Active Substance: NUSINERSEN
     Route: 037
     Dates: start: 20191218

REACTIONS (2)
  - Bronchial secretion retention [Fatal]
  - Respiratory failure [Fatal]

NARRATIVE: CASE EVENT DATE: 20210718
